FAERS Safety Report 24377915 (Version 1)
Quarter: 2024Q3

REPORT INFORMATION
  Report Type: Spontaneous
  Country: US (occurrence: None)
  Receive Date: 20240927
  Receipt Date: 20240927
  Transmission Date: 20241016
  Serious: No
  Sender: Public
  Company Number: None

PATIENT
  Age: 68 Year
  Sex: Male
  Weight: 87 kg

DRUGS (1)
  1. LISINOPRIL [Suspect]
     Active Substance: LISINOPRIL
     Indication: Hypertension
     Dosage: 1.00 UNK - UNKNOWN  DAILY ORAL ?
     Route: 048
     Dates: start: 20230703, end: 20231130

REACTIONS (3)
  - Hyperkalaemia [None]
  - Cardiac arrest [None]
  - Fall [None]

NARRATIVE: CASE EVENT DATE: 20231114
